FAERS Safety Report 8383757-7 (Version None)
Quarter: 2012Q2

REPORT INFORMATION
  Report Type: 
  Country: None (occurrence: None)
  Receive Date: 20120524
  Receipt Date: 20120521
  Transmission Date: 20120825
  Serious: Yes (Hospitalization)
  Sender: FDA-Public Use
  Company Number: NL-AMGEN-NLDSP2012003733

PATIENT
  Age: 65 Year
  Sex: Female
  Weight: 91 kg

DRUGS (21)
  1. DOXORUBICIN HCL [Concomitant]
     Indication: DIFFUSE LARGE B-CELL LYMPHOMA
     Dosage: 106 MG, UNK
     Route: 042
     Dates: start: 20111003
  2. VALACICLOVIR [Concomitant]
     Dosage: 500 MG, BID
     Dates: start: 20110720, end: 20111101
  3. PREDNISONE [Concomitant]
     Indication: DIFFUSE LARGE B-CELL LYMPHOMA
     Dosage: 100 MG, UNK
     Route: 048
     Dates: start: 20111003
  4. METOCLOPRAMIDE [Concomitant]
     Dosage: 10 MG, BID
  5. ACETAMINOPHEN [Concomitant]
     Dosage: UNK UNK, PRN
  6. DAGRAVIT [Concomitant]
     Dosage: UNK UNK, QD
  7. OMEPRAZOLE [Concomitant]
     Dosage: 40 MG, QD
  8. FLUTICASONE PROPIONATE [Concomitant]
     Dosage: 100 MUG, UNK
  9. LORAZEPAM [Concomitant]
     Dosage: 1 MG, QD
  10. COTRIM [Concomitant]
     Dosage: 480 MG, QD
     Dates: start: 20110720, end: 20111101
  11. FLUVOXAMINE MALEATE [Concomitant]
     Dosage: 50 MG, BID
  12. PEGFILGRASTIM [Suspect]
     Indication: DIFFUSE LARGE B-CELL LYMPHOMA
     Dosage: 6 MG, UNK
     Route: 058
     Dates: start: 20111004
  13. RITUXIMAB [Concomitant]
     Indication: DIFFUSE LARGE B-CELL LYMPHOMA
     Dosage: 750 MG, UNK
     Route: 042
     Dates: start: 20111003
  14. THYROX [Concomitant]
     Dosage: 100 MUG, QD
  15. ONDANSETRON [Concomitant]
     Dosage: 16 MG, QD
  16. VITAMIN B COMPLEX CAP [Concomitant]
     Dosage: UNK UNK, QD
  17. ASCORBIC ACID W/ZINC [Concomitant]
     Dosage: 50 MG, QD
  18. CYTOXAN [Concomitant]
     Indication: DIFFUSE LARGE B-CELL LYMPHOMA
     Dosage: 1620 MG, UNK
     Route: 042
     Dates: start: 20111003
  19. VINCRISTINE [Concomitant]
     Indication: DIFFUSE LARGE B-CELL LYMPHOMA
     Dosage: 2 MG, UNK
     Route: 042
     Dates: start: 20111003
  20. FLUNITRAZEPAM [Concomitant]
     Dosage: 1 MG, QD
  21. HALOPERIDOL [Concomitant]
     Dosage: 1 MG, QD

REACTIONS (3)
  - RESTLESSNESS [None]
  - NAUSEA [None]
  - MALAISE [None]
